FAERS Safety Report 21519301 (Version 2)
Quarter: 2022Q4

REPORT INFORMATION
  Report Type: Spontaneous
  Country: BR (occurrence: BR)
  Receive Date: 20221028
  Receipt Date: 20221230
  Transmission Date: 20230113
  Serious: Yes (Life-Threatening, Hospitalization, Other)
  Sender: FDA-Public Use
  Company Number: BR-NEBO-PC009277

PATIENT
  Age: 43 Year
  Sex: Female
  Weight: 53 kg

DRUGS (1)
  1. IRON ISOMALTOSIDE 1000 [Suspect]
     Active Substance: IRON ISOMALTOSIDE 1000
     Indication: Iron deficiency anaemia
     Route: 050
     Dates: start: 20221008, end: 20221008

REACTIONS (6)
  - Cardio-respiratory arrest [Recovered/Resolved]
  - Bradycardia [Unknown]
  - Hypotension [Unknown]
  - Hyperaemia [Unknown]
  - Face oedema [Unknown]
  - Tachycardia [Unknown]

NARRATIVE: CASE EVENT DATE: 20221008
